FAERS Safety Report 5062329-6 (Version None)
Quarter: 2006Q3

REPORT INFORMATION
  Report Type: 
  Country: None (occurrence: None)
  Receive Date: 20060721
  Receipt Date: 20060711
  Transmission Date: 20061208
  Serious: Yes (Hospitalization)
  Sender: FDA-Public Use
  Company Number: 2006086162

PATIENT
  Age: 53 Year
  Sex: Male

DRUGS (5)
  1. AZITHROMYCIN [Suspect]
     Indication: ANTIBIOTIC PROPHYLAXIS
     Dosage: 1200 MG (600 MG, 2 IN 1 WK), ORAL
     Route: 048
     Dates: start: 20060111, end: 20060515
  2. RETROVIR [Suspect]
     Indication: HIV INFECTION
     Dosage: 600 MG (200 MG, 3 IN 1 D), ORAL
     Route: 048
     Dates: start: 20060111, end: 20060515
  3. EMTRICITABINE (EMTRICITABINE) [Concomitant]
  4. KALETRA [Concomitant]
  5. URSO 250 [Concomitant]

REACTIONS (2)
  - ANAEMIA [None]
  - BONE MARROW FAILURE [None]
